FAERS Safety Report 26086883 (Version 1)
Quarter: 2025Q4

REPORT INFORMATION
  Report Type: Spontaneous
  Country: CH (occurrence: CH)
  Receive Date: 20251125
  Receipt Date: 20251125
  Transmission Date: 20260118
  Serious: Yes (Other)
  Sender: MYLAN
  Company Number: CH-MYLANLABS-2025M1098585

PATIENT
  Age: 48 Year
  Sex: Male

DRUGS (7)
  1. CLOZAPINE [Interacting]
     Active Substance: CLOZAPINE
     Indication: Schizophrenia
     Dosage: 100 MILLIGRAM, DAILY DOSE
  2. CLOZAPINE [Interacting]
     Active Substance: CLOZAPINE
     Dosage: 150 MILLIGRAM, DAILY DOSE
  3. CLOZAPINE [Interacting]
     Active Substance: CLOZAPINE
     Dosage: 200 MILLIGRAM, DAILY DOSE
  4. CLOZAPINE [Interacting]
     Active Substance: CLOZAPINE
     Dosage: 225 MILLIGRAM, DAILY DOSE
  5. FLUVOXAMINE [Interacting]
     Active Substance: FLUVOXAMINE
     Indication: Schizophrenia
     Dosage: 25 MILLIGRAM, DAILY DOSE
  6. FLUVOXAMINE [Interacting]
     Active Substance: FLUVOXAMINE
     Dosage: 50 MILLIGRAM, DAILY DOSE
  7. FLUVOXAMINE [Interacting]
     Active Substance: FLUVOXAMINE
     Dosage: 100 MILLIGRAM, DAILY DOSE

REACTIONS (4)
  - Labelled drug-drug interaction medication error [Unknown]
  - Drug level increased [Unknown]
  - Salivary hypersecretion [Unknown]
  - Off label use [Unknown]
